FAERS Safety Report 8846793 (Version 2)
Quarter: 2012Q4

REPORT INFORMATION
  Report Type: 
  Country: US (occurrence: None)
  Receive Date: 20121016
  Receipt Date: 20121123
  Transmission Date: 20130627
  Serious: Yes (Hospitalization, Other)
  Sender: FDA-Public Use
  Company Number: DSA_59930_2012

PATIENT
  Age: 72 Year
  Sex: Male
  Weight: 99.79 kg

DRUGS (14)
  1. ATIVAN [Suspect]
     Indication: ANXIETY
     Dosage: DF
     Route: 048
     Dates: start: 2012, end: 201209
  2. ATIVAN [Suspect]
     Indication: ANXIETY
     Dates: start: 201210
  3. GEODON [Concomitant]
     Indication: BIPOLAR DISORDER
     Dosage: DF
     Dates: start: 201209, end: 201210
  4. GEODON [Concomitant]
     Indication: THYROID DISORDER
     Dosage: DF
     Dates: start: 201209, end: 201210
  5. GEODON [Concomitant]
     Indication: BIPOLAR DISORDER
     Route: 048
     Dates: start: 201210
  6. GEODON [Concomitant]
     Indication: THYROID DISORDER
     Route: 048
     Dates: start: 201210
  7. SIMVASTATIN [Suspect]
     Indication: PRODUCT USED FOR UNKNOWN INDICATION
     Dosage: df
  8. LEVOTHYROXINE [Concomitant]
  9. PERPHENAZOME [Concomitant]
  10. MULTIVAMINS [Concomitant]
  11. UNSPECIFIED MEDICATION FOR HIGH BLOOD PRESSURE [Concomitant]
  12. UNSPECIFIED MEDICATION FOR HIGH CHOLESTEROL LEVELS [Concomitant]
  13. UNSPECIFIED MEDICATION FOR  BIPOLAR CONDITION [Concomitant]
  14. UNSPECIFIED MEDICATION FOR LOW THYROID LEVELS [Concomitant]

REACTIONS (6)
  - Dizziness [None]
  - Fall [None]
  - Head injury [None]
  - Dehydration [None]
  - Confusional state [None]
  - Depression [None]
